FAERS Safety Report 7348989-5 (Version None)
Quarter: 2011Q1

REPORT INFORMATION
  Report Type: 
  Country: None (occurrence: None)
  Receive Date: 20110303
  Receipt Date: 20110222
  Transmission Date: 20110831
  Serious: Yes (Other)
  Sender: FDA-Public Use
  Company Number: 027918

PATIENT
  Age: 24 Year
  Sex: Male
  Weight: 81.6 kg

DRUGS (4)
  1. IRBESARTAN [Concomitant]
  2. VALPROATE SODIUM [Suspect]
     Indication: EPILEPSY
     Dosage: 1 G BID ORAL
     Route: 048
  3. LEVETIRACETAM [Suspect]
     Indication: EPILEPSY
     Dosage: 1 G BID OARL
     Route: 048
  4. CLOBAZAM [Concomitant]

REACTIONS (1)
  - TUBULOINTERSTITIAL NEPHRITIS [None]
